FAERS Safety Report 9248903 (Version 2)
Quarter: 2013Q2

REPORT INFORMATION
  Report Type: Spontaneous
  Country: US (occurrence: US)
  Receive Date: 20130423
  Receipt Date: 20130503
  Transmission Date: 20140414
  Serious: Yes (Death, Hospitalization, Other)
  Sender: FDA-Public Use
  Company Number: US-JNJFOC-20130409548

PATIENT
  Age: 70 Year
  Sex: Male
  Weight: 97.07 kg

DRUGS (8)
  1. RIVAROXABAN [Suspect]
     Indication: CEREBROVASCULAR ACCIDENT PROPHYLAXIS
     Route: 048
     Dates: start: 20130320
  2. RIVAROXABAN [Suspect]
     Indication: ATRIAL FIBRILLATION
     Route: 048
     Dates: start: 20130320
  3. IBUPROFEN [Concomitant]
     Route: 065
  4. ASPIRIN [Concomitant]
     Route: 065
  5. ASPIRIN [Concomitant]
     Route: 065
  6. ALPHAGAN [Concomitant]
     Route: 047
  7. ATORVASTATIN [Concomitant]
     Route: 065
  8. CALCIUM [Concomitant]
     Route: 065

REACTIONS (2)
  - Haemorrhage intracranial [Fatal]
  - Prothrombin time prolonged [Unknown]
